FAERS Safety Report 10016762 (Version 2)
Quarter: 2014Q3

REPORT INFORMATION
  Report Type: Report from Study
  Country: KR (occurrence: KR)
  Receive Date: 20140318
  Receipt Date: 20140903
  Transmission Date: 20150326
  Serious: Yes (Other)
  Sender: FDA-Public Use
  Company Number: PHHY2014KR029590

PATIENT
  Age: 84 Year
  Sex: Male
  Weight: 67 kg

DRUGS (1)
  1. INDACATEROL [Suspect]
     Active Substance: INDACATEROL
     Dosage: 150 UG, DAILY
     Route: 055
     Dates: start: 20130627, end: 20130806

REACTIONS (2)
  - Orthostatic hypotension [Recovered/Resolved]
  - Dizziness [Recovered/Resolved]

NARRATIVE: CASE EVENT DATE: 20130802
